FAERS Safety Report 4483488-X (Version None)
Quarter: 2004Q4

REPORT INFORMATION
  Report Type: 
  Country: None (occurrence: None)
  Receive Date: 20041020
  Receipt Date: 20041011
  Transmission Date: 20050328
  Serious: Yes (Other)
  Sender: FDA-Public Use
  Company Number: 2004076858

PATIENT
  Age: 58 Year
  Sex: Female
  Weight: 92.5338 kg

DRUGS (5)
  1. LIPITOR [Suspect]
     Indication: BLOOD CHOLESTEROL INCREASED
     Dosage: 20 MG (20 MG, 1 IN 1 D), ORAL
     Route: 048
     Dates: start: 19990101
  2. DETROL LA [Suspect]
     Indication: INCONTINENCE
     Dosage: 4 MG (4 MG, 1 IN 1 D), ORAL
     Route: 048
     Dates: start: 20040101
  3. ESCITALOPRAM (ESCITALOPRAM) [Concomitant]
  4. IBUPROFEN [Concomitant]
  5. APOREX (DEXTROPROPOXYPHENE HYDROCHLORIDE, PARACETAMOL) [Concomitant]

REACTIONS (6)
  - AMNESIA [None]
  - BLADDER DISORDER [None]
  - DEMENTIA [None]
  - DISTURBANCE IN ATTENTION [None]
  - INCONTINENCE [None]
  - MEMORY IMPAIRMENT [None]
